FAERS Safety Report 6786945-6 (Version None)
Quarter: 2010Q2

REPORT INFORMATION
  Report Type: 
  Country: None (occurrence: None)
  Receive Date: 20100621
  Receipt Date: 20100604
  Transmission Date: 20101027
  Serious: Yes (Death)
  Sender: FDA-Public Use
  Company Number: DKLU1062725

PATIENT
  Age: 23 Month
  Sex: Female

DRUGS (3)
  1. COSMEGEN [Suspect]
     Indication: DRUG USE FOR UNKNOWN INDICATION
     Dosage: 0.7 MG MILLIGRAM(S), INTRAVENOUS, (NOT OTHERWISE SPECIFIED)
     Route: 042
     Dates: start: 20100516, end: 20100523
  2. COSMEGEN [Suspect]
     Indication: DRUG USE FOR UNKNOWN INDICATION
     Dosage: 0.7 MG MILLIGRAM(S), INTRAVENOUS, (NOT OTHERWISE SPECIFIED)
     Route: 042
     Dates: start: 20100416
  3. COSMEGEN [Suspect]
     Indication: DRUG USE FOR UNKNOWN INDICATION
     Dosage: 0.7 MG MILLIGRAM(S), INTRAVENOUS, (NOT OTHERWISE SPECIFIED)
     Route: 042
     Dates: start: 20100430

REACTIONS (5)
  - ACUTE HEPATIC FAILURE [None]
  - DISSEMINATED INTRAVASCULAR COAGULATION [None]
  - HEPATITIS FULMINANT [None]
  - HYPERAMMONAEMIA [None]
  - TOXIC ENCEPHALOPATHY [None]
